FAERS Safety Report 6962990-2 (Version None)
Quarter: 2010Q3

REPORT INFORMATION
  Report Type: 
  Country: None (occurrence: None)
  Receive Date: 20100902
  Receipt Date: 20100819
  Transmission Date: 20110219
  Serious: Yes (Other)
  Sender: FDA-Public Use
  Company Number: MX-ROCHE-724185

PATIENT
  Sex: Female
  Weight: 52 kg

DRUGS (10)
  1. PEGINTERFERON ALFA-2A [Suspect]
     Indication: HEPATITIS C
     Route: 058
     Dates: start: 20080801, end: 20090101
  2. PEGINTERFERON ALFA-2A [Suspect]
     Dosage: FREQUENCY QS
     Route: 058
     Dates: start: 20100402
  3. RIBAVIRIN [Suspect]
     Indication: HEPATITIS C
     Route: 048
     Dates: start: 20080801, end: 20090101
  4. RIBAVIRIN [Suspect]
     Route: 048
     Dates: start: 20100402
  5. REGULAR INSULIN [Concomitant]
     Indication: DIABETES MELLITUS
     Dosage: INSULIN 3 UI
     Route: 058
     Dates: start: 20090101
  6. CINNARIZINE [Concomitant]
     Route: 048
     Dates: start: 20080101
  7. RANITIDINE [Concomitant]
     Route: 048
     Dates: start: 20030101
  8. METFORMIN [Concomitant]
     Indication: DIABETES MELLITUS
     Route: 048
     Dates: start: 20050101
  9. ASPIRIN [Concomitant]
     Indication: NECK PAIN
     Route: 048
  10. COMPLEX B [Concomitant]
     Dates: start: 20090101

REACTIONS (2)
  - ASPHYXIA [None]
  - BONE PAIN [None]
